FAERS Safety Report 7650294-4 (Version None)
Quarter: 2011Q3

REPORT INFORMATION
  Report Type: 
  Country: None (occurrence: None)
  Receive Date: 20110719
  Receipt Date: 20110329
  Transmission Date: 20111222
  Serious: Yes (Disabling, Other)
  Sender: FDA-Public Use
  Company Number: 163-21880-11012270

PATIENT
  Age: 74 Year
  Sex: Male
  Weight: 78.02 kg

DRUGS (9)
  1. REVLIMID [Suspect]
     Indication: MYELODYSPLASTIC SYNDROME
     Dosage: 10 MG, DAILY, PO
     Route: 048
     Dates: start: 20100901
  2. PLAVIX [Concomitant]
  3. NEUPOGEN [Concomitant]
  4. OMEGA 3 FATTY (FISH OIL) (UNKNOWN) [Concomitant]
  5. HYDREA [Suspect]
     Indication: PRODUCT USED FOR UNKNOWN INDICATION
     Dosage: 500 MG, PO
     Route: 048
     Dates: start: 20101015
  6. FUROSEMIDE [Concomitant]
  7. VIDAZA [Suspect]
     Indication: MYELODYSPLASTIC SYNDROME
  8. ASPIRIN [Concomitant]
  9. BLOOD TRANSFUSION (BLOOD AND RELATED PRODUCTS) (INJECTION) [Concomitant]

REACTIONS (3)
  - WHITE BLOOD CELL COUNT DECREASED [None]
  - RED BLOOD CELL COUNT DECREASED [None]
  - ANAEMIA [None]
